FAERS Safety Report 9426633 (Version 1)
Quarter: 2013Q3

REPORT INFORMATION
  Report Type: Spontaneous
  Country: US (occurrence: None)
  Receive Date: 20130729
  Receipt Date: 20130729
  Transmission Date: 20140515
  Serious: Yes (Life-Threatening)
  Sender: FDA-Public Use
  Company Number: None

PATIENT
  Age: 76 Year
  Sex: Male
  Weight: 68.95 kg

DRUGS (2)
  1. NOVOLOG [Suspect]
  2. LANTUS [Concomitant]

REACTIONS (2)
  - Hypoglycaemia [None]
  - Incorrect dose administered [None]
